FAERS Safety Report 7417685-8 (Version None)
Quarter: 2011Q2

REPORT INFORMATION
  Report Type: 
  Country: None (occurrence: None)
  Receive Date: 20110415
  Receipt Date: 20110406
  Transmission Date: 20111010
  Serious: Yes (Other)
  Sender: FDA-Public Use
  Company Number: ZA-ABBOTT-11P-143-0717175-00

PATIENT
  Age: 26 Year
  Sex: Female

DRUGS (3)
  1. TRUVADA [Concomitant]
     Indication: HIV INFECTION
     Dosage: TABLETS/CAPSULES NOT TAKEN AT CONCEPTION
     Route: 048
     Dates: start: 20110217
  2. ALUVIA TABLETS [Suspect]
     Indication: HIV INFECTION
     Dosage: TABLETS/CAPSULES TAKEN AT CONCEPTION
     Route: 048
     Dates: start: 20100225
  3. ZIDOVUDINE [Concomitant]
     Indication: HIV INFECTION
     Dosage: TABLETS/CAPSULES NOT TAKEN AT CONCEPTION
     Route: 048
     Dates: start: 20110217

REACTIONS (1)
  - ABORTION SPONTANEOUS [None]
